FAERS Safety Report 9509937 (Version 2)
Quarter: 2013Q3

REPORT INFORMATION
  Report Type: Spontaneous
  Country: US (occurrence: US)
  Receive Date: 20130909
  Receipt Date: 20130909
  Transmission Date: 20140515
  Serious: Yes (Hospitalization)
  Sender: FDA-Public Use
  Company Number: US-BRISTOL-MYERS SQUIBB COMPANY-18798553

PATIENT
  Age: 15 Year
  Sex: Female
  Weight: 88.43 kg

DRUGS (2)
  1. ABILIFY [Suspect]
     Indication: POST-TRAUMATIC STRESS DISORDER
     Dosage: 20MG RECENT DOSE 7.5 MG, STOPPED, RESTARTED AT 10MG ON 5APR13,DOSE INCREASED TO 15MG THEN 20MG
  2. ABILIFY [Suspect]
     Indication: DEPRESSION
     Dosage: 20MG RECENT DOSE 7.5 MG, STOPPED, RESTARTED AT 10MG ON 5APR13,DOSE INCREASED TO 15MG THEN 20MG

REACTIONS (1)
  - Suicide attempt [Unknown]
